FAERS Safety Report 17373919 (Version 1)
Quarter: 2020Q1

REPORT INFORMATION
  Report Type: Spontaneous
  Country: US (occurrence: US)
  Receive Date: 20200205
  Receipt Date: 20200205
  Transmission Date: 20200409
  Serious: No
  Sender: FDA-Public Use
  Company Number: US-JNJFOC-20200200645

PATIENT
  Age: 70 Year
  Sex: Female
  Weight: 49.94 kg

DRUGS (1)
  1. REMICADE [Suspect]
     Active Substance: INFLIXIMAB
     Indication: CROHN^S DISEASE
     Dosage: 200MG/VIAL/100MG
     Route: 042
     Dates: start: 1990

REACTIONS (2)
  - Alopecia [Not Recovered/Not Resolved]
  - Hormone level abnormal [Unknown]

NARRATIVE: CASE EVENT DATE: 201910
